FAERS Safety Report 5192034-7 (Version None)
Quarter: 2006Q4

REPORT INFORMATION
  Report Type: 
  Country: None (occurrence: None)
  Receive Date: 20061220
  Receipt Date: 20061208
  Transmission Date: 20070319
  Serious: Yes (Other)
  Sender: FDA-Public Use
  Company Number: 2006152115

PATIENT
  Age: 63 Year
  Sex: Male

DRUGS (6)
  1. ALDACTONE [Suspect]
     Dosage: 12.5 MG,ORAL
     Route: 048
  2. MICARDIS [Concomitant]
  3. LASIX [Concomitant]
  4. LENDORM [Concomitant]
  5. CARVEDILOL [Concomitant]
  6. EVAMYL (LORMETAZEPAM) [Concomitant]

REACTIONS (2)
  - DEPRESSED MOOD [None]
  - MANIA [None]
